FAERS Safety Report 16223407 (Version 1)
Quarter: 2019Q2

REPORT INFORMATION
  Report Type: Spontaneous
  Country: US (occurrence: US)
  Receive Date: 20190422
  Receipt Date: 20190422
  Transmission Date: 20190711
  Serious: Yes (Hospitalization)
  Sender: FDA-Public Use
  Company Number: US-PFIZER INC-2019169167

PATIENT
  Age: 36 Year
  Sex: Male
  Weight: 101.2 kg

DRUGS (3)
  1. HUMALOG [Concomitant]
     Active Substance: INSULIN LISPRO
     Indication: DIABETES MELLITUS
     Dosage: UNK
     Dates: start: 20190319
  2. ZYVOX [Suspect]
     Active Substance: LINEZOLID
     Indication: SPINAL CORD INFECTION
     Dosage: 600 MG, 2X/DAY
  3. LISPRO INSULIN [Concomitant]
     Active Substance: INSULIN LISPRO
     Dosage: UNK, SINGLE

REACTIONS (2)
  - Back pain [Unknown]
  - Product prescribing issue [Unknown]
